FAERS Safety Report 21818621 (Version 3)
Quarter: 2023Q1

REPORT INFORMATION
  Report Type: Spontaneous
  Country: FR (occurrence: FR)
  Receive Date: 20230104
  Receipt Date: 20230301
  Transmission Date: 20230417
  Serious: Yes (Hospitalization, Other)
  Sender: FDA-Public Use
  Company Number: None

PATIENT
  Age: 55 Year
  Sex: Female
  Weight: 56 kg

DRUGS (5)
  1. PEMBROLIZUMAB [Suspect]
     Active Substance: PEMBROLIZUMAB
     Indication: Triple negative breast cancer
     Dosage: 400 MILLIGRAM, CYCLICAL
     Route: 042
     Dates: start: 20220914, end: 20221215
  2. PACLITAXEL [Suspect]
     Active Substance: PACLITAXEL
     Dosage: UNK
     Dates: start: 20220914
  3. CETIRIZINE [Concomitant]
     Active Substance: CETIRIZINE HYDROCHLORIDE
  4. METHYLPREDNISOLONE [Concomitant]
     Active Substance: METHYLPREDNISOLONE
  5. RANITIDINE [Concomitant]
     Active Substance: RANITIDINE

REACTIONS (2)
  - Myocardial oedema [Not Recovered/Not Resolved]
  - Dyspnoea [Recovered/Resolved]

NARRATIVE: CASE EVENT DATE: 20220901
